FAERS Safety Report 24430856 (Version 1)
Quarter: 2024Q4

REPORT INFORMATION
  Report Type: Spontaneous
  Country: US (occurrence: US)
  Receive Date: 20241014
  Receipt Date: 20241014
  Transmission Date: 20250115
  Serious: No
  Sender: BAUSCH AND LOMB
  Company Number: US-BAUSCHBL-2024BNL035192

PATIENT
  Age: 77 Year
  Sex: Female

DRUGS (6)
  1. LATANOPROST [Suspect]
     Active Substance: LATANOPROST
     Indication: Glaucoma
     Route: 047
     Dates: start: 202204
  2. LATANOPROST [Suspect]
     Active Substance: LATANOPROST
     Route: 047
     Dates: end: 202404
  3. LATANOPROST [Suspect]
     Active Substance: LATANOPROST
     Route: 047
     Dates: start: 2024, end: 202405
  4. BRIMONIDINE TARTRATE [Suspect]
     Active Substance: BRIMONIDINE TARTRATE
     Indication: Glaucoma
     Route: 047
     Dates: start: 202204
  5. BRIMONIDINE TARTRATE [Suspect]
     Active Substance: BRIMONIDINE TARTRATE
     Route: 047
     Dates: end: 202404
  6. BRIMONIDINE TARTRATE [Suspect]
     Active Substance: BRIMONIDINE TARTRATE
     Route: 047
     Dates: start: 2024, end: 202405

REACTIONS (6)
  - Erythema [Recovered/Resolved]
  - Eye discharge [Recovered/Resolved]
  - Intraocular pressure increased [Recovered/Resolved]
  - Therapeutic procedure [Unknown]
  - Impaired driving ability [Unknown]
  - Drug ineffective [Unknown]

NARRATIVE: CASE EVENT DATE: 20220401
